FAERS Safety Report 8853471 (Version 1)
Quarter: 2012Q4

REPORT INFORMATION
  Report Type: 
  Country: US (occurrence: US)
  Receive Date: 20121022
  Receipt Date: 20121022
  Transmission Date: 20130627
  Serious: Yes (Other)
  Sender: FDA-Public Use
  Company Number: US-ASTRAZENECA-2012SE78181

PATIENT
  Age: 88 Year
  Sex: Male
  Weight: 68 kg

DRUGS (5)
  1. SYMBICORT [Suspect]
     Indication: DYSPNOEA
     Route: 055
     Dates: start: 2011
  2. MVI [Concomitant]
  3. CALCIUM [Concomitant]
  4. LIVE VIRUS TREATMENT [Concomitant]
  5. SPIRIVA [Concomitant]

REACTIONS (6)
  - Renal cancer [Unknown]
  - Weight decreased [Unknown]
  - Increased bronchial secretion [Unknown]
  - Off label use [Recovered/Resolved]
  - Drug ineffective for unapproved indication [Unknown]
  - Dyspnoea [Unknown]
